FAERS Safety Report 17173775 (Version 1)
Quarter: 2019Q4

REPORT INFORMATION
  Report Type: Report from Study
  Country: None (occurrence: BE)
  Receive Date: 20191218
  Receipt Date: 20191218
  Transmission Date: 20200122
  Serious: Yes (Hospitalization, Other)
  Sender: FDA-Public Use
  Company Number: BE-ABBVIE-17K-013-2123435-00

PATIENT
  Sex: Male

DRUGS (16)
  1. DUODOPA [Suspect]
     Active Substance: CARBIDOPA\LEVODOPA
     Dosage: MD: 9.5 ML CD: 2.4 ML/HR DURING 16 HRS EDA: 1.5 ML
     Route: 050
     Dates: start: 20170926, end: 20170929
  2. DUODOPA [Suspect]
     Active Substance: CARBIDOPA\LEVODOPA
     Dosage: MD: 10 ML CD: 2.2 ML/HR DURING 16 HRS EDA: 2 ML
     Route: 050
     Dates: start: 20171016, end: 20171019
  3. DUODOPA [Suspect]
     Active Substance: CARBIDOPA\LEVODOPA
     Dosage: MD: 10 ML CD: 2.4 ML/HR DURING 16 HRS EDA: 1.5 ML
     Route: 050
     Dates: start: 201710, end: 20171016
  4. DUODOPA [Suspect]
     Active Substance: CARBIDOPA\LEVODOPA
     Dosage: MD: 9.5 ML CD: 2.6 ML/HR DURING 16 HRS EDA: 1.5 ML
     Route: 050
     Dates: start: 20170929, end: 20171002
  5. DUODOPA [Suspect]
     Active Substance: CARBIDOPA\LEVODOPA
     Dosage: MD=10ML CD=4.3ML/HR BEFORE NOON PLUS 4.4 ML/H AFTER NOON ML/HR ED=2.8ML
     Route: 050
     Dates: start: 20180622, end: 20180717
  6. DUODOPA [Suspect]
     Active Substance: CARBIDOPA\LEVODOPA
     Dosage: MD=10ML CD=3.6ML/HR DURING 16HRS EDA=2ML
     Route: 050
     Dates: start: 20171024, end: 20180328
  7. DUODOPA [Suspect]
     Active Substance: CARBIDOPA\LEVODOPA
     Dosage: MD= 10ML CD= 3.9ML/HR DURING 16HRS ED= 2.8ML
     Route: 050
     Dates: start: 20190502, end: 20191128
  8. DUODOPA [Suspect]
     Active Substance: CARBIDOPA\LEVODOPA
     Indication: PARKINSON^S DISEASE
     Dosage: MD: 9.5 ML CD: 2.4 ML/HR DURING 16 HRS EDA: 1.5 ML
     Route: 050
     Dates: start: 20170925, end: 20170926
  9. DUODOPA [Suspect]
     Active Substance: CARBIDOPA\LEVODOPA
     Dosage: MD: 10 ML CD: 2.4 ML/HR DURING 16 HRS EDA: 2 ML
     Route: 050
     Dates: start: 20171019, end: 20171020
  10. DUODOPA [Suspect]
     Active Substance: CARBIDOPA\LEVODOPA
     Dosage: MD=10ML CD=4.3ML/HR DURING 16HRS ED=2.8ML
     Route: 050
     Dates: start: 20180328, end: 20180622
  11. DUODOPA [Suspect]
     Active Substance: CARBIDOPA\LEVODOPA
     Dosage: MD=3.5ML, CD=2.8ML/HR DURING 16HRS, ED=1.4ML
     Route: 050
     Dates: start: 20191128, end: 20191212
  12. DUODOPA [Suspect]
     Active Substance: CARBIDOPA\LEVODOPA
     Dosage: MD= 10ML CD= 4 (AM) AND 4.1 (PM) ML/HR DURING 16HRS ED= 2.8ML
     Route: 050
     Dates: start: 20190128, end: 20190502
  13. DUODOPA [Suspect]
     Active Substance: CARBIDOPA\LEVODOPA
     Dosage: MD: 10 ML CD: 2.8 ML/HR DURING 16 HRS EDA: 1.5 ML
     Route: 050
     Dates: start: 20171002, end: 201710
  14. DUODOPA [Suspect]
     Active Substance: CARBIDOPA\LEVODOPA
     Dosage: MD: 10 ML CD: 3.4 ML/HR DURING 16 HRS EDA: 1.5 ML
     Route: 050
     Dates: start: 20171020, end: 20171024
  15. DUODOPA [Suspect]
     Active Substance: CARBIDOPA\LEVODOPA
     Dosage: MD=10ML CD=4.3 (AM)/4.5(PM)ML/HR DURING 16HRS ED=2.8ML
     Route: 050
     Dates: start: 20180717, end: 20190128
  16. DUODOPA [Suspect]
     Active Substance: CARBIDOPA\LEVODOPA
     Dosage: MD=3.5ML, CD=2.9ML/HR IN MORNING AND CD= 3.3ML/HR IN?AFTERNOON, ED=1.4ML
     Route: 050
     Dates: start: 20191212

REACTIONS (14)
  - Hypokinesia [Unknown]
  - Knee arthroplasty [Unknown]
  - Underdose [Recovered/Resolved]
  - Posture abnormal [Unknown]
  - Weight decreased [Unknown]
  - Tremor [Unknown]
  - Dyskinesia [Not Recovered/Not Resolved]
  - Freezing phenomenon [Not Recovered/Not Resolved]
  - Therapeutic product effect incomplete [Unknown]
  - Pain in extremity [Unknown]
  - Reduced facial expression [Unknown]
  - Musculoskeletal stiffness [Unknown]
  - Gait disturbance [Not Recovered/Not Resolved]
  - Mobility decreased [Not Recovered/Not Resolved]

NARRATIVE: CASE EVENT DATE: 2017
